FAERS Safety Report 8721952 (Version 2)
Quarter: 2012Q4

REPORT INFORMATION
  Report Type: 
  Country: AU (occurrence: AU)
  Receive Date: 20120814
  Receipt Date: 20121213
  Transmission Date: 20130627
  Serious: Yes (Death, Other)
  Sender: FDA-Public Use
  Company Number: PHHY2012AU069841

PATIENT
  Age: 56 Year
  Sex: Female

DRUGS (3)
  1. ACLASTA [Suspect]
     Dosage: 5 mg
     Route: 042
     Dates: start: 20090605
  2. ACLASTA [Suspect]
     Dosage: 5 mg
     Route: 042
     Dates: start: 20100521
  3. ACLASTA [Suspect]
     Dosage: 5 mg,
     Route: 042
     Dates: start: 20110920

REACTIONS (30)
  - Death [Fatal]
  - Pancreatitis relapsing [Unknown]
  - Fat necrosis [Unknown]
  - Spleen disorder [Unknown]
  - Cholestasis [Recovering/Resolving]
  - Pneumothorax [Unknown]
  - Emphysema [Unknown]
  - Asthma [Unknown]
  - Sepsis [Unknown]
  - Nervous system disorder [Unknown]
  - Guillain-Barre syndrome [Unknown]
  - CSF protein decreased [Unknown]
  - Reflux gastritis [Unknown]
  - Splenic infarction [Unknown]
  - Gallbladder disorder [Unknown]
  - Cholelithiasis [Unknown]
  - Platelet count decreased [Unknown]
  - Colitis [Unknown]
  - Mucosal ulceration [Unknown]
  - Large intestine perforation [Unknown]
  - Peritonitis [Unknown]
  - Inflammatory bowel disease [Unknown]
  - Crohn^s disease [Unknown]
  - Urosepsis [Unknown]
  - Ischaemia [Unknown]
  - Ulcer [Unknown]
  - Necrosis [Unknown]
  - Pain [Unknown]
  - Oedema [Unknown]
  - Malaise [Unknown]
